FAERS Safety Report 14947129 (Version 2)
Quarter: 2018Q2

REPORT INFORMATION
  Report Type: Spontaneous
  Country: JP (occurrence: JP)
  Receive Date: 20180529
  Receipt Date: 20180625
  Transmission Date: 20180711
  Serious: Yes (Other)
  Sender: FDA-Public Use
  Company Number: JP-MYLANLABS-2018M1036151

PATIENT
  Age: 54 Year
  Sex: Female
  Weight: 38 kg

DRUGS (6)
  1. DOCETAXEL. [Suspect]
     Active Substance: DOCETAXEL
     Dosage: RECEIVED SECOND COURSE
     Route: 065
     Dates: start: 201603
  2. FLUOROURACIL. [Suspect]
     Active Substance: FLUOROURACIL
     Dosage: RECEIVED SECOND COURSE
     Route: 065
     Dates: start: 201603
  3. CISPLATIN. [Suspect]
     Active Substance: CISPLATIN
     Dosage: RECEIVED SECOND COURSE
     Route: 065
     Dates: start: 201603
  4. DOCETAXEL. [Suspect]
     Active Substance: DOCETAXEL
     Indication: SQUAMOUS CELL CARCINOMA
     Dosage: 60 MG, ONCE, RECEIVED FIRST COURSE
     Route: 065
     Dates: start: 201602
  5. FLUOROURACIL. [Suspect]
     Active Substance: FLUOROURACIL
     Indication: SQUAMOUS CELL CARCINOMA
     Dosage: 350 MG, FOR 5 DAYS DURING FIRST COURSE.
     Route: 065
     Dates: start: 201602
  6. CISPLATIN. [Suspect]
     Active Substance: CISPLATIN
     Indication: SQUAMOUS CELL CARCINOMA
     Dosage: 6 MG, RECEIVED FIRST COURSE
     Route: 065
     Dates: start: 201602

REACTIONS (1)
  - Acute focal bacterial nephritis [Recovered/Resolved]
